FAERS Safety Report 4622958-8 (Version None)
Quarter: 2005Q1

REPORT INFORMATION
  Report Type: 
  Country: None (occurrence: None)
  Receive Date: 20050329
  Receipt Date: 20050301
  Transmission Date: 20050727
  Serious: No
  Sender: FDA-Public Use
  Company Number: 9887

PATIENT
  Age: 26 Year
  Sex: Female

DRUGS (2)
  1. METHOTREXATE [Suspect]
  2. ETANERCEPT [Suspect]
     Dosage: 25 MG/M 2/WK
     Dates: start: 20030301

REACTIONS (2)
  - DRUG EXPOSURE DURING PREGNANCY [None]
  - PREGNANCY [None]
